FAERS Safety Report 11003460 (Version 1)
Quarter: 2015Q2

REPORT INFORMATION
  Report Type: Spontaneous
  Country: PL (occurrence: PL)
  Receive Date: 20150409
  Receipt Date: 20150409
  Transmission Date: 20150821
  Serious: Yes (Other)
  Sender: FDA-Public Use
  Company Number: PL-AUROBINDO-AUR-APL-2015-03054

PATIENT
  Age: 34 Year
  Sex: Female

DRUGS (2)
  1. OLANZAPINE. [Suspect]
     Active Substance: OLANZAPINE
     Indication: DEPRESSIVE SYMPTOM
     Dosage: 25 MG, DAILY
     Route: 065
  2. VENLAFAXINE [Interacting]
     Active Substance: VENLAFAXINE HYDROCHLORIDE
     Indication: DEPRESSIVE SYMPTOM
     Dosage: 75 MG, DAILY
     Route: 065

REACTIONS (7)
  - Insomnia [Recovered/Resolved]
  - Libido increased [Recovered/Resolved]
  - Logorrhoea [Recovered/Resolved]
  - Drug interaction [Recovered/Resolved]
  - Elevated mood [Recovered/Resolved]
  - Psychomotor hyperactivity [Recovered/Resolved]
  - Hypomania [Recovered/Resolved]
